FAERS Safety Report 5958563-0 (Version None)
Quarter: 2008Q4

REPORT INFORMATION
  Report Type: 
  Country: None (occurrence: None)
  Receive Date: 20081119
  Receipt Date: 20081107
  Transmission Date: 20090506
  Serious: Yes (Other)
  Sender: FDA-Public Use
  Company Number: US-PFIZER INC-2008081288

PATIENT
  Sex: Female

DRUGS (1)
  1. GEODON [Suspect]
     Route: 048

REACTIONS (2)
  - CONSTIPATION [None]
  - URINARY RETENTION [None]
